FAERS Safety Report 5011301-0 (Version None)
Quarter: 2006Q2

REPORT INFORMATION
  Report Type: 
  Country: None (occurrence: None)
  Receive Date: 20060524
  Receipt Date: 20060511
  Transmission Date: 20061013
  Serious: No
  Sender: FDA-Public Use
  Company Number: R301586-315-USA

PATIENT
  Age: 53 Year
  Sex: Female
  Weight: 120 kg

DRUGS (11)
  1. RABEPRAZOLE SODIUM [Suspect]
     Indication: DYSPEPSIA
     Dosage: ORAL
     Route: 048
     Dates: start: 20060407
  2. FLUTICASONE PROPIONATE [Concomitant]
  3. AMOXICILLIN [Concomitant]
  4. LEXAPRO [Concomitant]
  5. GLIPIZIDE [Concomitant]
  6. METFORMIN [Concomitant]
  7. REQUIP [Concomitant]
  8. LEVOXYL [Concomitant]
  9. TYLENOL (PANADEINE CO) [Concomitant]
  10. TOPIRAMATE [Concomitant]
  11. CALCIUM GLUCONATE [Concomitant]

REACTIONS (1)
  - BREAST CANCER FEMALE [None]
